FAERS Safety Report 6341174-5 (Version None)
Quarter: 2009Q3

REPORT INFORMATION
  Report Type: 
  Country: None (occurrence: None)
  Receive Date: 20090904
  Receipt Date: 20090311
  Transmission Date: 20100115
  Serious: No
  Sender: FDA-Public Use
  Company Number: A0774200A

PATIENT
  Age: 70 Year
  Sex: Male

DRUGS (2)
  1. REQUIP [Suspect]
     Indication: PARKINSON'S DISEASE
     Dosage: 4TAB PER DAY
     Route: 048
     Dates: start: 20030101, end: 20090201
  2. UNKNOWN [Concomitant]

REACTIONS (9)
  - DEPRESSION [None]
  - FEELING ABNORMAL [None]
  - INSOMNIA [None]
  - LIBIDO INCREASED [None]
  - LOSS OF EMPLOYMENT [None]
  - PATHOLOGICAL GAMBLING [None]
  - PSYCHOMOTOR HYPERACTIVITY [None]
  - SPEECH DISORDER [None]
  - TRANCE [None]
